FAERS Safety Report 16989804 (Version 1)
Quarter: 2019Q4

REPORT INFORMATION
  Report Type: Spontaneous
  Country: US (occurrence: US)
  Receive Date: 20190919
  Receipt Date: 20190919
  Transmission Date: 20200122
  Serious: No
  Sender: FDA-Public Use
  Company Number: None

PATIENT
  Sex: Female

DRUGS (1)
  1. CYCLOSPORINE MODIFIED 100MG MAYNE PHARMA [Suspect]
     Active Substance: CYCLOSPORINE
     Indication: URTICARIA
     Route: 048
     Dates: start: 20190906, end: 20190917

REACTIONS (1)
  - Hypersensitivity [None]
